FAERS Safety Report 18054048 (Version 4)
Quarter: 2020Q4

REPORT INFORMATION
  Report Type: Spontaneous
  Country: US (occurrence: US)
  Receive Date: 20200722
  Receipt Date: 20201218
  Transmission Date: 20210113
  Serious: Yes (Other)
  Sender: FDA-Public Use
  Company Number: US-PFIZER INC-2020279422

PATIENT
  Age: 70 Year
  Sex: Female

DRUGS (1)
  1. IBRANCE [Suspect]
     Active Substance: PALBOCICLIB
     Dosage: UNK

REACTIONS (14)
  - Memory impairment [Unknown]
  - Eating disorder [Unknown]
  - Crying [Unknown]
  - Burning sensation [Unknown]
  - Somnolence [Unknown]
  - Insomnia [Unknown]
  - Neoplasm progression [Unknown]
  - Headache [Unknown]
  - Rash erythematous [Unknown]
  - Tremor [Unknown]
  - Fatigue [Unknown]
  - Dermatitis exfoliative [Unknown]
  - Rash [Unknown]
  - Cerebral disorder [Unknown]

NARRATIVE: CASE EVENT DATE: 202011
